FAERS Safety Report 9635543 (Version 2)
Quarter: 2013Q4

REPORT INFORMATION
  Report Type: Spontaneous
  Country: US (occurrence: US)
  Receive Date: 20131021
  Receipt Date: 20131122
  Transmission Date: 20140711
  Serious: Yes (Hospitalization, Other)
  Sender: FDA-Public Use
  Company Number: US-UCBSA-100216

PATIENT
  Age: 44 Year
  Sex: Male
  Weight: 68 kg

DRUGS (1)
  1. CIMZIA [Suspect]
     Indication: CROHN^S DISEASE
     Dates: start: 20110131

REACTIONS (4)
  - Intussusception [Recovered/Resolved]
  - Abdominal discomfort [Recovered/Resolved]
  - Duodenal ulcer [Recovered/Resolved]
  - Abdominal pain [Unknown]
